FAERS Safety Report 23655007 (Version 1)
Quarter: 2024Q1

REPORT INFORMATION
  Report Type: Spontaneous
  Country: NL (occurrence: NL)
  Receive Date: 20240320
  Receipt Date: 20240320
  Transmission Date: 20240410
  Serious: Yes (Other)
  Sender: FDA-Public Use
  Company Number: None

PATIENT
  Age: 32 Year
  Sex: Male
  Weight: 73 kg

DRUGS (1)
  1. LEVOFLOXACIN [Suspect]
     Active Substance: LEVOFLOXACIN
     Indication: Pneumonia mycoplasmal
     Dosage: 2DD1 ST , TABLET OMHULD 500MG / BRAND NAME NOT SPECIFIED
     Route: 065
     Dates: start: 20240124, end: 20240131

REACTIONS (1)
  - Muscle rupture [Recovering/Resolving]
